FAERS Safety Report 5115242-X (Version None)
Quarter: 2006Q3

REPORT INFORMATION
  Report Type: 
  Country: None (occurrence: None)
  Receive Date: 20060922
  Receipt Date: 20060912
  Transmission Date: 20061208
  Serious: Yes (Hospitalization)
  Sender: FDA-Public Use
  Company Number: 2006RR-03436

PATIENT
  Age: 84 Year
  Sex: Female

DRUGS (2)
  1. ASPIRIN [Suspect]
     Indication: ANTICOAGULANT THERAPY
     Dosage: 150 MG,
  2. IBUPROFEN [Suspect]
     Indication: ANTIINFLAMMATORY THERAPY

REACTIONS (1)
  - GASTROINTESTINAL HAEMORRHAGE [None]
